FAERS Safety Report 19520224 (Version 4)
Quarter: 2021Q3

REPORT INFORMATION
  Report Type: Spontaneous
  Country: JP (occurrence: JP)
  Receive Date: 20210712
  Receipt Date: 20210908
  Transmission Date: 20211014
  Serious: Yes (Other)
  Sender: FDA-Public Use
  Company Number: JP-BAYER-2021-172318

PATIENT
  Age: 66 Year
  Sex: Female
  Weight: 67.5 kg

DRUGS (12)
  1. TRICHLORMETHIAZIDE [Concomitant]
     Active Substance: TRICHLORMETHIAZIDE
     Dosage: DAILY DOSE 2MG
     Route: 048
     Dates: start: 20181004
  2. FAMOTIDINE. [Concomitant]
     Active Substance: FAMOTIDINE
     Dosage: DAILY DOSE 10MG
     Route: 048
     Dates: start: 20200923
  3. ADEMPAS [Suspect]
     Active Substance: RIOCIGUAT
     Indication: PULMONARY HYPERTENSION
     Dosage: DAILY DOSE 3 MG
     Dates: start: 20190930, end: 20191027
  4. FUROSEMIDE. [Concomitant]
     Active Substance: FUROSEMIDE
     Dosage: UNK UNK, PRN
     Route: 048
     Dates: start: 20181107, end: 20200918
  5. ACETAMINOPHEN. [Concomitant]
     Active Substance: ACETAMINOPHEN
     Dosage: DAILY DOSE 1800MG
     Route: 048
     Dates: start: 20190118
  6. ADEMPAS [Suspect]
     Active Substance: RIOCIGUAT
     Indication: PULMONARY HYPERTENSION
     Dosage: DAILY DOSE 1.5 MG
     Dates: start: 20190902, end: 20190929
  7. FUROSEMIDE. [Concomitant]
     Active Substance: FUROSEMIDE
     Dosage: DAILY DOSE 20 MG
     Route: 048
     Dates: start: 20200919
  8. ADEMPAS [Suspect]
     Active Substance: RIOCIGUAT
     Indication: PULMONARY HYPERTENSION
     Dosage: DAILY DOSE 4.5 MG
     Dates: start: 20191028, end: 20210804
  9. FERROMIA [Concomitant]
     Active Substance: SODIUM FERROUS CITRATE
     Dosage: DAILY DOSE 100MG
     Route: 048
     Dates: start: 20150402
  10. URSO [Concomitant]
     Active Substance: URSODIOL
     Dosage: DAILY DOSE 200MG
     Route: 048
     Dates: start: 20150329
  11. FEBURIC [Concomitant]
     Active Substance: FEBUXOSTAT
     Dosage: DAILY DOSE 10MG
     Route: 048
     Dates: start: 20200120
  12. WARFARIN [Concomitant]
     Active Substance: WARFARIN
     Dosage: DAILY DOSE 1.5MG
     Route: 048
     Dates: start: 20150402

REACTIONS (3)
  - Renal impairment [Not Recovered/Not Resolved]
  - Renal failure [Not Recovered/Not Resolved]
  - Right ventricular failure [Not Recovered/Not Resolved]

NARRATIVE: CASE EVENT DATE: 20200916
